FAERS Safety Report 20760845 (Version 2)
Quarter: 2022Q3

REPORT INFORMATION
  Report Type: Spontaneous
  Country: US (occurrence: US)
  Receive Date: 20220428
  Receipt Date: 20220929
  Transmission Date: 20221026
  Serious: No
  Sender: FDA-Public Use
  Company Number: US-Calliditas-2022CAL00055

PATIENT
  Age: 61 Year
  Sex: Female

DRUGS (1)
  1. TARPEYO [Suspect]
     Active Substance: BUDESONIDE
     Indication: IgA nephropathy
     Dosage: 16 MG ONCE DAILY
     Route: 050
     Dates: start: 20220325

REACTIONS (5)
  - Contusion [Recovering/Resolving]
  - Fatigue [Not Recovered/Not Resolved]
  - Swelling [Recovering/Resolving]
  - Condition aggravated [Recovering/Resolving]
  - Skin atrophy [Recovering/Resolving]

NARRATIVE: CASE EVENT DATE: 20220301
